FAERS Safety Report 16890897 (Version 1)
Quarter: 2019Q4

REPORT INFORMATION
  Report Type: Spontaneous
  Country: US (occurrence: US)
  Receive Date: 20191007
  Receipt Date: 20191007
  Transmission Date: 20200122
  Serious: No
  Sender: FDA-Public Use
  Company Number: US-PFIZER INC-2019428424

PATIENT
  Age: 63 Year
  Sex: Female

DRUGS (1)
  1. IBRANCE [Suspect]
     Active Substance: PALBOCICLIB
     Indication: BREAST CANCER FEMALE
     Dosage: 125 MG, CYCLIC, 21 DAYS ON AND 7 OFF
     Route: 048
     Dates: start: 201906

REACTIONS (3)
  - Oral mucosal blistering [Unknown]
  - Vaginal mucosal blistering [Unknown]
  - Alopecia [Unknown]
